FAERS Safety Report 20539141 (Version 1)
Quarter: 2022Q1

REPORT INFORMATION
  Report Type: Spontaneous
  Country: CA (occurrence: CA)
  Receive Date: 20220302
  Receipt Date: 20220302
  Transmission Date: 20220424
  Serious: Yes (Death, Hospitalization, Other)
  Sender: FDA-Public Use
  Company Number: CA-JNJFOC-20210926857

PATIENT
  Age: 78 Year
  Sex: Male

DRUGS (9)
  1. ZYTIGA [Suspect]
     Active Substance: ABIRATERONE ACETATE
     Indication: Metastases to nervous system
     Route: 048
  2. ZYTIGA [Suspect]
     Active Substance: ABIRATERONE ACETATE
     Route: 048
  3. ZYTIGA [Suspect]
     Active Substance: ABIRATERONE ACETATE
     Route: 048
  4. FIRMAGON [Suspect]
     Active Substance: DEGARELIX ACETATE
     Indication: Prostate cancer
     Route: 065
  5. FIRMAGON [Suspect]
     Active Substance: DEGARELIX ACETATE
     Dosage: ONCE
     Route: 065
  6. PREDNISONE [Suspect]
     Active Substance: PREDNISONE
     Indication: Product used for unknown indication
     Route: 065
  7. HYDROMORPHONE [Concomitant]
     Active Substance: HYDROMORPHONE
  8. HYDROCHLOROTHIAZIDE\RAMIPRIL [Concomitant]
     Active Substance: HYDROCHLOROTHIAZIDE\RAMIPRIL
  9. TAMSULOSIN [Concomitant]
     Active Substance: TAMSULOSIN

REACTIONS (18)
  - Prostate cancer [Fatal]
  - Underweight [Fatal]
  - Dysgeusia [Fatal]
  - Dyspnoea [Fatal]
  - Constipation [Fatal]
  - Asthenia [Fatal]
  - Fatigue [Fatal]
  - Gait disturbance [Fatal]
  - Gait inability [Fatal]
  - Injection site discomfort [Fatal]
  - Injection site pain [Fatal]
  - Pain [Fatal]
  - Prostatic specific antigen abnormal [Fatal]
  - Weight decreased [Fatal]
  - Neck surgery [Fatal]
  - Immobile [Fatal]
  - Loss of personal independence in daily activities [Fatal]
  - Paralysis [Fatal]
